FAERS Safety Report 8854511 (Version 3)
Quarter: 2013Q1

REPORT INFORMATION
  Report Type: Spontaneous
  Country: US (occurrence: US)
  Receive Date: 20121023
  Receipt Date: 20130120
  Transmission Date: 20140127
  Serious: No
  Sender: FDA-Public Use
  Company Number: US-ASTRAZENECA-2012SE78295

PATIENT
  Age: 58 Year
  Sex: Female

DRUGS (2)
  1. NEXIUM [Suspect]
     Route: 048
  2. XANAX [Concomitant]

REACTIONS (5)
  - Dyspepsia [Unknown]
  - Throat irritation [Unknown]
  - Oesophageal disorder [Unknown]
  - Oesophagitis bacterial [Unknown]
  - Drug dose omission [Unknown]
